APPROVED DRUG PRODUCT: DIFFERIN
Active Ingredient: ADAPALENE
Strength: 0.1%
Dosage Form/Route: GEL;TOPICAL
Application: N020380 | Product #002
Applicant: GALDERMA LABORATORIES LP
Approved: Jul 8, 2016 | RLD: Yes | RS: Yes | Type: OTC